FAERS Safety Report 4697172-0 (Version None)
Quarter: 2005Q2

REPORT INFORMATION
  Report Type: 
  Country: None (occurrence: None)
  Receive Date: 20050622
  Receipt Date: 20050331
  Transmission Date: 20051028
  Serious: Yes (Death)
  Sender: FDA-Public Use
  Company Number: PHBS2005JP04512

PATIENT
  Age: 67 Year
  Sex: Female

DRUGS (10)
  1. SANDOSTATIN LAR [Suspect]
     Indication: ACROMEGALY
     Dosage: 30 MG/D
     Route: 030
     Dates: start: 20010101, end: 20050301
  2. SANDOSTATIN [Suspect]
     Indication: ACROMEGALY
     Dates: end: 20010101
  3. PARLODEL [Concomitant]
     Dosage: 7.5 MG/D
     Route: 048
     Dates: start: 20041110
  4. FLUITRAN [Concomitant]
     Dosage: 2 MG/D
     Route: 048
  5. ADALAT [Concomitant]
     Dosage: 20 MG/D
     Route: 048
  6. THYRADIN [Concomitant]
     Dosage: 75 UG/D
     Route: 048
  7. ULCERLMIN [Concomitant]
     Dosage: 3 G/D
     Route: 048
  8. ROCALTROL [Concomitant]
     Dosage: 0.75 UG/D
     Route: 048
  9. MAGNESIUM OXIDE [Concomitant]
     Dosage: 3 G/D
     Route: 048
  10. ALOSENN [Concomitant]
     Dosage: 0.5 G/D
     Route: 048

REACTIONS (4)
  - BONE PAIN [None]
  - DEATH [None]
  - LOSS OF CONSCIOUSNESS [None]
  - VOMITING [None]
